FAERS Safety Report 4485631-5 (Version None)
Quarter: 2004Q4

REPORT INFORMATION
  Report Type: 
  Country: None (occurrence: None)
  Receive Date: 20041026
  Receipt Date: 20041015
  Transmission Date: 20050328
  Serious: Yes (Life-Threatening, Disabling)
  Sender: FDA-Public Use
  Company Number: US-MERCK-0410USA02365

PATIENT
  Age: 79 Year
  Sex: Female

DRUGS (3)
  1. VIOXX [Suspect]
     Indication: ARTHRITIS
     Route: 048
     Dates: start: 20040501, end: 20040101
  2. ASPIRIN [Concomitant]
     Route: 065
  3. LANOXIN [Concomitant]
     Route: 065

REACTIONS (7)
  - DYSPNOEA [None]
  - FLUID RETENTION [None]
  - NASAL OEDEMA [None]
  - OEDEMA PERIPHERAL [None]
  - STOMACH DISCOMFORT [None]
  - WALKING DISABILITY [None]
  - WEIGHT INCREASED [None]
